FAERS Safety Report 10070965 (Version 2)
Quarter: 2014Q2

REPORT INFORMATION
  Report Type: Spontaneous
  Country: US (occurrence: US)
  Receive Date: 20140410
  Receipt Date: 20140512
  Transmission Date: 20141212
  Serious: Yes (Other)
  Sender: FDA-Public Use
  Company Number: US-GLAXOSMITHKLINE-A1068524A

PATIENT
  Age: 47 Year
  Sex: Female
  Weight: 60 kg

DRUGS (9)
  1. MEKINIST [Suspect]
     Indication: METASTATIC MALIGNANT MELANOMA
     Dosage: .5MG UNKNOWN
     Route: 048
     Dates: start: 201308, end: 20140322
  2. TAFINLAR [Suspect]
     Indication: METASTATIC MALIGNANT MELANOMA
     Dosage: 150MG TWICE PER DAY
     Route: 065
     Dates: start: 201308
  3. LIDOCAINE [Suspect]
     Indication: PRODUCT USED FOR UNKNOWN INDICATION
     Route: 065
  4. MOTRIN [Suspect]
     Indication: PRODUCT USED FOR UNKNOWN INDICATION
     Route: 065
  5. TYLENOL [Suspect]
     Indication: PRODUCT USED FOR UNKNOWN INDICATION
     Route: 065
  6. PREDNISONE [Concomitant]
  7. ESTRADIOL [Concomitant]
  8. PANTOPRAZOLE [Concomitant]
  9. MULTIVITAMIN [Concomitant]

REACTIONS (13)
  - Panniculitis [Recovering/Resolving]
  - Vasculitis [Unknown]
  - Acute febrile neutrophilic dermatosis [Unknown]
  - Rash papular [Unknown]
  - Pyrexia [Unknown]
  - Arthralgia [Unknown]
  - Rash [Unknown]
  - Headache [Unknown]
  - Tongue blistering [Unknown]
  - Lichenoid keratosis [Unknown]
  - Chills [Unknown]
  - Drug hypersensitivity [Unknown]
  - Joint swelling [Unknown]
